FAERS Safety Report 6269564-X (Version None)
Quarter: 2009Q3

REPORT INFORMATION
  Report Type: 
  Country: None (occurrence: None)
  Receive Date: 20090715
  Receipt Date: 20090706
  Transmission Date: 20100115
  Serious: Yes (Hospitalization)
  Sender: FDA-Public Use
  Company Number: US-MERCK-0804USA00851

PATIENT
  Age: 57 Year
  Sex: Female

DRUGS (6)
  1. FOSAMAX [Suspect]
     Indication: OSTEOPOROSIS
     Route: 048
     Dates: start: 20030108, end: 20080424
  2. FOSAMAX PLUS D [Suspect]
     Indication: OSTEOPOROSIS
     Route: 048
  3. [THERAPY UNSPECIFIED] [Concomitant]
     Indication: HYPERTENSION
     Route: 065
     Dates: start: 20010101
  4. [THERAPY UNSPECIFIED] [Concomitant]
     Indication: BLOOD CHOLESTEROL INCREASED
     Route: 065
     Dates: start: 20010101
  5. ALLEGRA [Concomitant]
     Indication: HYPERSENSITIVITY
     Route: 065
     Dates: start: 20010113, end: 20060101
  6. SYNTHROID [Concomitant]
     Indication: THYROID DISORDER
     Route: 065
     Dates: start: 20010110

REACTIONS (5)
  - ABSCESS [None]
  - DENTAL CARIES [None]
  - HYPOTHYROIDISM [None]
  - PARATHYROID TUMOUR BENIGN [None]
  - TYPE 2 DIABETES MELLITUS [None]
